FAERS Safety Report 21324128 (Version 2)
Quarter: 2022Q3

REPORT INFORMATION
  Report Type: Report from Study
  Country: CN (occurrence: CN)
  Receive Date: 20220912
  Receipt Date: 20220927
  Transmission Date: 20221027
  Serious: Yes (Hospitalization, Other)
  Sender: FDA-Public Use
  Company Number: CN-TAKEDA-2022TUS045166

PATIENT
  Age: 32 Year
  Sex: Female
  Weight: 46 kg

DRUGS (20)
  1. VEDOLIZUMAB [Suspect]
     Active Substance: VEDOLIZUMAB
     Indication: Colitis ulcerative
     Dosage: 300 MILLIGRAM
     Route: 042
     Dates: start: 20220625
  2. BICYCLOL [Concomitant]
     Active Substance: BICYCLOL
     Indication: Prophylaxis
     Dosage: 25 MILLIGRAM, TID
     Route: 048
     Dates: start: 20220615, end: 20220627
  3. METHYLPREDNISOLONE SODIUM SUCCINATE [Concomitant]
     Active Substance: METHYLPREDNISOLONE SODIUM SUCCINATE
     Indication: Antiinflammatory therapy
     Dosage: 40 MILLIGRAM
     Dates: start: 20220618, end: 20220627
  4. IRON SUCROSE [Concomitant]
     Active Substance: IRON SUCROSE
     Indication: Supplementation therapy
     Dosage: 100 MILLIGRAM, QOD
     Route: 042
     Dates: start: 20220623, end: 20220627
  5. IRON SUCROSE [Concomitant]
     Active Substance: IRON SUCROSE
     Dosage: 100 MILLIGRAM, QOD
     Route: 042
     Dates: start: 20220705, end: 20220708
  6. OMEPRAZOLE SODIUM [Concomitant]
     Active Substance: OMEPRAZOLE SODIUM
     Indication: Prophylaxis
     Dosage: 40 MILLIGRAM, QD
     Dates: start: 20220625, end: 20220626
  7. ILAPRAZOLE [Concomitant]
     Active Substance: ILAPRAZOLE
     Indication: Prophylaxis
     Dosage: 5 MILLIGRAM, QD
     Route: 048
     Dates: start: 20220626, end: 20220627
  8. BACILLUS LICHENIFORMIS CAPSULE,LIVE [Concomitant]
     Indication: Dysbiosis
     Dosage: 0.5 GRAM, TID
     Route: 048
     Dates: start: 20220627
  9. Compound glutamine [Concomitant]
     Indication: Gastrointestinal disorder
     Dosage: UNK UNK, TID
     Route: 048
     Dates: start: 20220614
  10. CALCITRIOL [Concomitant]
     Active Substance: CALCITRIOL
     Indication: Osteoporosis prophylaxis
     Dosage: UNK UNK, QD
     Route: 048
     Dates: start: 20220616
  11. CLOSTRIDIUM BUTYRICUM SPORES STRAIN M-55 [Concomitant]
     Active Substance: CLOSTRIDIUM BUTYRICUM SPORES STRAIN M-55
     Indication: Dysbiosis
     Dosage: 40 MILLIGRAM, TID
     Route: 048
     Dates: start: 20220616, end: 20220627
  12. Levornidazole and sodium chloride [Concomitant]
     Indication: Antiinflammatory therapy
     Dosage: 0.5 GRAM, BID
     Dates: start: 20220616, end: 20220627
  13. FOLIC ACID [Concomitant]
     Active Substance: FOLIC ACID
     Indication: Haemoglobin decreased
     Dosage: 5 MILLIGRAM
     Route: 048
     Dates: start: 20220619, end: 20220627
  14. MESALAMINE [Concomitant]
     Active Substance: MESALAMINE
     Indication: Inflammatory bowel disease
     Dosage: 1 GRAM
     Dates: start: 20220620, end: 20220627
  15. MESALAMINE [Concomitant]
     Active Substance: MESALAMINE
     Dosage: 1 GRAM, TID
     Dates: start: 20220702
  16. DEXAMETHASONE SODIUM PHOSPHATE [Concomitant]
     Active Substance: DEXAMETHASONE SODIUM PHOSPHATE
     Indication: Inflammatory bowel disease
     Dosage: 5 MILLIGRAM
     Route: 054
     Dates: start: 20220620, end: 20220627
  17. DEXAMETHASONE SODIUM PHOSPHATE [Concomitant]
     Active Substance: DEXAMETHASONE SODIUM PHOSPHATE
     Dosage: 5 MILLIGRAM, QD
     Route: 054
     Dates: start: 20220703
  18. PROMETHAZINE HYDROCHLORIDE [Concomitant]
     Active Substance: PROMETHAZINE HYDROCHLORIDE
     Indication: Antiallergic therapy
     Dosage: 25 MILLIGRAM, QOD
     Route: 030
     Dates: start: 20220623, end: 20220627
  19. PROMETHAZINE HYDROCHLORIDE [Concomitant]
     Active Substance: PROMETHAZINE HYDROCHLORIDE
     Dosage: 25 MILLIGRAM, QOD
     Route: 030
     Dates: start: 20220705, end: 20220708
  20. PREDNISONE ACETATE [Concomitant]
     Active Substance: PREDNISONE ACETATE
     Indication: Inflammatory bowel disease
     Dosage: 50 MILLIGRAM, QD
     Route: 048
     Dates: start: 20220703

REACTIONS (2)
  - Pyrexia [Not Recovered/Not Resolved]
  - Lower gastrointestinal haemorrhage [Recovering/Resolving]

NARRATIVE: CASE EVENT DATE: 20220702
